FAERS Safety Report 6982855-X (Version None)
Quarter: 2010Q3

REPORT INFORMATION
  Report Type: 
  Country: None (occurrence: None)
  Receive Date: 20100914
  Receipt Date: 20100413
  Transmission Date: 20110219
  Serious: No
  Sender: FDA-Public Use
  Company Number: US-PFIZER INC-2010047125

PATIENT
  Sex: Female
  Weight: 74.376 kg

DRUGS (2)
  1. LYRICA [Suspect]
     Indication: FIBROMYALGIA
     Dosage: 50 MG, 1X/DAY
     Dates: start: 20100331
  2. VOLTAREN [Concomitant]
     Dosage: 75 MG, 2X/DAY

REACTIONS (3)
  - BURNING SENSATION [None]
  - DIZZINESS [None]
  - SOMNOLENCE [None]
